FAERS Safety Report 6960739-0 (Version None)
Quarter: 2010Q3

REPORT INFORMATION
  Report Type: 
  Country: None (occurrence: None)
  Receive Date: 20100901
  Receipt Date: 20100820
  Transmission Date: 20110219
  Serious: Yes (Other)
  Sender: FDA-Public Use
  Company Number: KR-PFIZER INC-2010105589

PATIENT
  Age: 58 Year
  Sex: Male

DRUGS (1)
  1. VIAGRA [Suspect]
     Dosage: 100 MG BY CUTTING INTO HALVES, ONCE IN 20 DAYS
     Route: 048

REACTIONS (5)
  - BLISTER [None]
  - HEADACHE [None]
  - MUSCULOSKELETAL CHEST PAIN [None]
  - OCULAR HYPERAEMIA [None]
  - PRURITUS GENITAL [None]
